FAERS Safety Report 20428449 (Version 4)
Quarter: 2022Q4

REPORT INFORMATION
  Report Type: Spontaneous
  Country: JP (occurrence: JP)
  Receive Date: 20220204
  Receipt Date: 20221207
  Transmission Date: 20230113
  Serious: No
  Sender: FDA-Public Use
  Company Number: JP-GLAXOSMITHKLINE-JP2022JPN017320

PATIENT

DRUGS (10)
  1. SOTROVIMAB [Suspect]
     Active Substance: SOTROVIMAB
     Indication: COVID-19
     Dosage: 500 MG PER DAY
     Route: 042
     Dates: start: 20220127, end: 20220127
  2. VALACYCLOVIR HYDROCHLORIDE [Suspect]
     Active Substance: VALACYCLOVIR HYDROCHLORIDE
     Indication: Oral herpes
     Dosage: UNK
     Route: 048
     Dates: start: 20211212
  3. AMBROXOL [Suspect]
     Active Substance: AMBROXOL
     Indication: Pyrexia
     Dosage: 45 MG PER DAY
     Route: 048
     Dates: start: 20220126, end: 20220204
  4. AMBROXOL [Suspect]
     Active Substance: AMBROXOL
     Indication: Headache
  5. COMIRNATY [Suspect]
     Active Substance: TOZINAMERAN
     Indication: COVID-19 prophylaxis
     Dosage: 0.3 ML
     Route: 030
     Dates: start: 202108
  6. COMIRNATY [Suspect]
     Active Substance: TOZINAMERAN
     Indication: COVID-19 prophylaxis
     Dosage: 0.3 ML
     Route: 030
     Dates: start: 202109
  7. CLOPERASTINE [Suspect]
     Active Substance: CLOPERASTINE
     Indication: Pyrexia
     Dosage: 60 MG PER DAY
     Route: 048
     Dates: start: 20220126, end: 20220204
  8. CLOPERASTINE [Suspect]
     Active Substance: CLOPERASTINE
     Indication: Headache
  9. CALONAL [Suspect]
     Active Substance: ACETAMINOPHEN
     Indication: Pyrexia
     Dosage: 400 MG PER DAY
     Route: 048
     Dates: start: 20220126, end: 20220204
  10. CALONAL [Suspect]
     Active Substance: ACETAMINOPHEN
     Indication: Headache

REACTIONS (1)
  - Exposure during pregnancy [Unknown]
